FAERS Safety Report 9012637 (Version 1)
Quarter: 2013Q1

REPORT INFORMATION
  Report Type: Spontaneous
  Country: GB (occurrence: GB)
  Receive Date: 20130114
  Receipt Date: 20130114
  Transmission Date: 20140127
  Serious: Yes (Other)
  Sender: FDA-Public Use
  Company Number: PHHY2013GB002370

PATIENT
  Age: 92 Year
  Sex: Female

DRUGS (3)
  1. MIRTAZAPINE [Suspect]
     Indication: DEPRESSION
     Dosage: 30 MG, UNK
     Route: 048
     Dates: start: 20121117, end: 20121220
  2. ASPIRIN [Concomitant]
     Route: 048
  3. ATORVASTATIN [Concomitant]
     Route: 048

REACTIONS (3)
  - Weight decreased [Unknown]
  - Diet refusal [Unknown]
  - Anxiety [Unknown]
